FAERS Safety Report 5895840-6 (Version None)
Quarter: 2008Q3

REPORT INFORMATION
  Report Type: 
  Country: None (occurrence: None)
  Receive Date: 20080822
  Receipt Date: 20080407
  Transmission Date: 20090109
  Serious: Yes (Death)
  Sender: FDA-Public Use
  Company Number: T200800648

PATIENT

DRUGS (1)
  1. MORPHINE [Suspect]

REACTIONS (1)
  - INTENTIONAL DRUG MISUSE [None]
